FAERS Safety Report 10239346 (Version 2)
Quarter: 2014Q2

REPORT INFORMATION
  Report Type: Spontaneous
  Country: US (occurrence: US)
  Receive Date: 20140616
  Receipt Date: 20140616
  Transmission Date: 20141212
  Serious: Yes (Hospitalization, Other)
  Sender: FDA-Public Use
  Company Number: US-009507513-2010SP056520

PATIENT
  Sex: Female
  Weight: 114.31 kg

DRUGS (1)
  1. NUVARING [Suspect]
     Indication: CONTRACEPTION
     Dosage: UNK UNK, QM
     Route: 067
     Dates: start: 20051219, end: 20080122

REACTIONS (18)
  - Migraine [Recovered/Resolved]
  - Generalised tonic-clonic seizure [Not Recovered/Not Resolved]
  - Hyperglycaemia [Recovering/Resolving]
  - Sinus tachycardia [Unknown]
  - Pneumonia [Unknown]
  - Benign intracranial hypertension [Unknown]
  - Presyncope [Recovered/Resolved]
  - Superior sagittal sinus thrombosis [Recovered/Resolved with Sequelae]
  - Headache [Recovered/Resolved]
  - Nausea [Unknown]
  - Visual field defect [Unknown]
  - Epistaxis [Recovered/Resolved]
  - Nasal congestion [Unknown]
  - Refraction disorder [Unknown]
  - Dyspnoea exertional [Unknown]
  - Upper-airway cough syndrome [Unknown]
  - Hypercoagulation [Unknown]
  - Mental disorder [Unknown]
